FAERS Safety Report 8520635-4 (Version None)
Quarter: 2012Q3

REPORT INFORMATION
  Report Type: 
  Country: None (occurrence: None)
  Receive Date: 20120706
  Receipt Date: 20120614
  Transmission Date: 20120928
  Serious: Yes (Other)
  Sender: FDA-Public Use
  Company Number: 2012P1025775

PATIENT
  Age: 65 Year
  Sex: Female
  Weight: 52.6173 kg

DRUGS (4)
  1. DESOXIMETASONE [Suspect]
     Indication: BLISTER
     Dosage: ;TOP
     Route: 061
     Dates: start: 20120301, end: 20120301
  2. TRAZODONE HYDROCHLORIDE [Concomitant]
  3. CLOBETASOL PROPIONATE [Suspect]
     Indication: SKIN ULCER
     Dosage: ;BID;TOP
     Route: 061
     Dates: start: 20120419, end: 20120427
  4. CLONAZEPAM [Concomitant]

REACTIONS (4)
  - IMPAIRED HEALING [None]
  - BLISTER [None]
  - DRUG INEFFECTIVE [None]
  - CONDITION AGGRAVATED [None]
